FAERS Safety Report 23311834 (Version 1)
Quarter: 2023Q4

REPORT INFORMATION
  Report Type: Spontaneous
  Country: US (occurrence: None)
  Receive Date: 20231218
  Receipt Date: 20231218
  Transmission Date: 20240110
  Serious: Yes (Other)
  Sender: FDA-Public Use
  Company Number: None

PATIENT
  Age: 69 Year
  Sex: Male
  Weight: 90 kg

DRUGS (6)
  1. SULFAMETHOXAZOLE\TRIMETHOPRIM [Suspect]
     Active Substance: SULFAMETHOXAZOLE\TRIMETHOPRIM
     Indication: Prostatitis
     Dosage: OTHER QUANTITY : 84 TABLET(S);?FREQUENCY : TWICE A DAY;?
     Route: 048
     Dates: start: 20231128, end: 20231215
  2. LEVOTHYROXINE [Concomitant]
     Active Substance: LEVOTHYROXINE
  3. Tamsulosin .4mg [Concomitant]
  4. SIMVASTATIN [Concomitant]
     Active Substance: SIMVASTATIN
  5. D3 25 mcg [Concomitant]
  6. Allergy relief [Concomitant]

REACTIONS (3)
  - Insomnia [None]
  - Skin exfoliation [None]
  - Hypersensitivity [None]

NARRATIVE: CASE EVENT DATE: 20231128
